FAERS Safety Report 6731680-3 (Version None)
Quarter: 2010Q2

REPORT INFORMATION
  Report Type: 
  Country: None (occurrence: None)
  Receive Date: 20100519
  Receipt Date: 20100511
  Transmission Date: 20101027
  Serious: No
  Sender: FDA-Public Use
  Company Number: US-SOLVAY-00210001908

PATIENT
  Age: 39 Year
  Sex: Female
  Weight: 88.636 kg

DRUGS (5)
  1. MIRENA [Concomitant]
     Indication: CONTRACEPTION
     Dosage: DAILY DOSE:  UNKNOWN
     Route: 015
     Dates: start: 20030101, end: 20080301
  2. MIRENA [Concomitant]
     Dosage: DAILY DOSE:  UNKNOWN
     Route: 015
     Dates: start: 20080301
  3. CELEXA [Concomitant]
     Indication: ANXIETY
     Dosage: DAILY DOSE: 40 MILLIGRAM(S)
     Route: 048
  4. ANDROGEL [Suspect]
     Indication: ACCIDENTAL EXPOSURE
     Dosage: DAILY DOSE: 5 GRAM(S), VIA PUMP.
     Route: 062
     Dates: start: 20091001, end: 20100301
  5. ANDROGEL [Suspect]
     Dosage: DAILY DOSE: 10 GRAM(S), VIA PUMP.
     Route: 062
     Dates: start: 20100301

REACTIONS (1)
  - MENSTRUAL DISORDER [None]
